FAERS Safety Report 20483466 (Version 1)
Quarter: 2022Q1

REPORT INFORMATION
  Report Type: Spontaneous
  Country: CA (occurrence: CA)
  Receive Date: 20220217
  Receipt Date: 20220217
  Transmission Date: 20220423
  Serious: Yes (Hospitalization, Other)
  Sender: FDA-Public Use
  Company Number: CA-JNJFOC-20211023194

PATIENT
  Age: 56 Year
  Sex: Female
  Weight: 58 kg

DRUGS (19)
  1. DARUNAVIR [Suspect]
     Active Substance: DARUNAVIR
     Indication: HIV infection
     Route: 065
     Dates: start: 2015, end: 20210401
  2. DARUNAVIR [Suspect]
     Active Substance: DARUNAVIR
     Route: 065
     Dates: start: 20210405
  3. RITONAVIR [Interacting]
     Active Substance: RITONAVIR
     Indication: HIV infection
     Route: 065
     Dates: start: 2015
  4. RITONAVIR [Interacting]
     Active Substance: RITONAVIR
     Route: 065
     Dates: start: 20210405
  5. TACROLIMUS [Interacting]
     Active Substance: TACROLIMUS
     Indication: Immunosuppressant drug level increased
     Route: 065
     Dates: start: 20210407
  6. TACROLIMUS [Interacting]
     Active Substance: TACROLIMUS
     Indication: Renal transplant
     Dosage: EXTENDED RELEASE
     Route: 065
     Dates: start: 20210403, end: 20210404
  7. TACROLIMUS [Interacting]
     Active Substance: TACROLIMUS
     Route: 065
  8. DOLUTEGRAVIR [Suspect]
     Active Substance: DOLUTEGRAVIR
     Indication: HIV infection
     Route: 065
     Dates: start: 20210405
  9. DOLUTEGRAVIR [Suspect]
     Active Substance: DOLUTEGRAVIR
     Route: 065
  10. ABACAVIR [Suspect]
     Active Substance: ABACAVIR
     Indication: HIV infection
     Route: 065
     Dates: start: 20210405
  11. ABACAVIR [Suspect]
     Active Substance: ABACAVIR
     Route: 065
  12. FERROUS FUMARATE [Concomitant]
     Active Substance: FERROUS FUMARATE
     Indication: Product used for unknown indication
     Route: 065
     Dates: start: 202103
  13. DARUNAVIR [Concomitant]
     Active Substance: DARUNAVIR
     Indication: HIV infection
     Dates: start: 20210405
  14. ORIPRIM [Concomitant]
     Dates: start: 202103
  15. PREDNISONE [Concomitant]
     Active Substance: PREDNISONE
     Indication: Immunosuppressant drug level increased
     Route: 065
     Dates: start: 202103
  16. MYCOPHENOLIC ACID [Concomitant]
     Active Substance: MYCOPHENOLIC ACID
     Indication: Immunosuppressant drug therapy
     Route: 065
     Dates: start: 202103
  17. AMLODIPINE [Concomitant]
     Active Substance: AMLODIPINE BESYLATE
     Indication: Product used for unknown indication
     Route: 065
     Dates: start: 202103
  18. PANTOPRAZOLE [Concomitant]
     Active Substance: PANTOPRAZOLE
     Indication: Product used for unknown indication
     Route: 065
     Dates: start: 202103
  19. SULFAMETHOXAZOLE\TRIMETHOPRIM [Concomitant]
     Active Substance: SULFAMETHOXAZOLE\TRIMETHOPRIM
     Indication: Product used for unknown indication
     Route: 065

REACTIONS (5)
  - Nephropathy toxic [Recovered/Resolved]
  - New onset diabetes after transplantation [Recovered/Resolved]
  - Drug interaction [Recovered/Resolved]
  - Immunosuppressant drug level increased [Recovered/Resolved]
  - Toxicity to various agents [Recovered/Resolved]

NARRATIVE: CASE EVENT DATE: 20210101
